FAERS Safety Report 9972507 (Version 1)
Quarter: 2014Q1

REPORT INFORMATION
  Report Type: Report from Study
  Country: US (occurrence: US)
  Receive Date: 20140306
  Receipt Date: 20140306
  Transmission Date: 20141002
  Serious: No
  Sender: FDA-Public Use
  Company Number: US-ABBVIE-13P-163-1154024-00

PATIENT
  Age: 63 Year
  Sex: Male

DRUGS (9)
  1. HUMIRA [Suspect]
     Indication: CROHN^S DISEASE
     Dosage: LOADING DOSE
     Dates: start: 20130606, end: 20130606
  2. HUMIRA [Suspect]
  3. HUMIRA [Suspect]
  4. ALBUTEROL [Concomitant]
     Indication: ASTHMA
  5. RESTORIL [Concomitant]
     Indication: INSOMNIA
     Dosage: AT BEDTIME
  6. UNKNOWN MEDICATION HYPERTENSION [Concomitant]
     Indication: HYPERTENSION
  7. AMITRIPTYLINE [Concomitant]
     Indication: DEPRESSION
  8. LIPITOR [Concomitant]
     Indication: BLOOD CHOLESTEROL INCREASED
  9. CHANTIX [Concomitant]
     Indication: EX-TOBACCO USER
     Dates: start: 201307

REACTIONS (2)
  - Somnolence [Not Recovered/Not Resolved]
  - Diarrhoea [Not Recovered/Not Resolved]
